FAERS Safety Report 6045655-3 (Version None)
Quarter: 2009Q1

REPORT INFORMATION
  Report Type: 
  Country: None (occurrence: None)
  Receive Date: 20090121
  Receipt Date: 20081205
  Transmission Date: 20090719
  Serious: No
  Sender: FDA-Public Use
  Company Number: US-BAYER-200814788BCC

PATIENT
  Age: 54 Year
  Sex: Male
  Weight: 77 kg

DRUGS (1)
  1. ALEVE-D SINUS + COLD [Suspect]
     Indication: HEADACHE
     Dosage: TOTAL DAILY DOSE: 2 DF
     Route: 048
     Dates: start: 20081204, end: 20081204

REACTIONS (4)
  - DIZZINESS [None]
  - DRY MOUTH [None]
  - FEELING JITTERY [None]
  - HEADACHE [None]
